FAERS Safety Report 10498055 (Version 1)
Quarter: 2014Q3

REPORT INFORMATION
  Report Type: Spontaneous
  Country: US (occurrence: None)
  Receive Date: 20140815
  Receipt Date: 20140815
  Transmission Date: 20150326
  Serious: Yes (Hospitalization, Other)
  Sender: FDA-Public Use
  Company Number: ADR-2013-02359

PATIENT
  Age: 76 Year
  Sex: Male

DRUGS (4)
  1. DILAUDID [Suspect]
     Active Substance: HYDROMORPHONE HYDROCHLORIDE
  2. BACLOFEN INTRATHECAL [Suspect]
     Active Substance: BACLOFEN
     Indication: PAIN
  3. FENTANYL. [Suspect]
     Active Substance: FENTANYL
  4. CLONIDINE. [Suspect]
     Active Substance: CLONIDINE

REACTIONS (2)
  - Loss of consciousness [None]
  - Overdose [None]
